FAERS Safety Report 6875754-5 (Version None)
Quarter: 2010Q3

REPORT INFORMATION
  Report Type: 
  Country: None (occurrence: None)
  Receive Date: 20100727
  Receipt Date: 20100714
  Transmission Date: 20110219
  Serious: Yes (Other)
  Sender: FDA-Public Use
  Company Number: BR-PFIZER INC-2010081665

PATIENT
  Age: 65 Year
  Sex: Female
  Weight: 50 kg

DRUGS (6)
  1. CHAMPIX [Suspect]
     Indication: NICOTINE DEPENDENCE
     Dosage: 0.5 MG, 1X/DAY
     Route: 048
     Dates: start: 20100614, end: 20100701
  2. CHAMPIX [Suspect]
     Dosage: 1 MG UNK
     Route: 048
     Dates: end: 20100622
  3. ADALAT [Concomitant]
     Indication: HYPERTENSION
     Dosage: UNK
  4. ATENOLOL [Concomitant]
     Indication: HYPERTENSION
     Dosage: UNK
     Dates: start: 20050101
  5. VYTORIN [Concomitant]
     Indication: BLOOD CHOLESTEROL ABNORMAL
     Dosage: UNK
     Dates: start: 20050101
  6. BONIVA [Concomitant]
     Indication: OSTEOPOROSIS
     Dosage: UNK
     Dates: start: 20060101

REACTIONS (1)
  - CHROMATURIA [None]
